FAERS Safety Report 7333383-3 (Version None)
Quarter: 2011Q1

REPORT INFORMATION
  Report Type: 
  Country: None (occurrence: None)
  Receive Date: 20110304
  Receipt Date: 20110208
  Transmission Date: 20110831
  Serious: No
  Sender: FDA-Public Use
  Company Number: US-B.I. PHARMACEUTICALS,INC./RIDGEFIELD-2011-BP-05071BP

PATIENT
  Sex: Female

DRUGS (10)
  1. AVAPRO [Concomitant]
  2. AMLODIPINE [Concomitant]
  3. CARVEDILOL [Concomitant]
     Dosage: 50 MG
  4. ASPIRIN [Concomitant]
     Dosage: 81 MG
  5. PRADAXA [Suspect]
     Indication: ATRIAL FIBRILLATION
     Dosage: 300 MG
     Route: 048
     Dates: start: 20110205
  6. FUROSEMIDE [Concomitant]
  7. DOXAZOSIN [Concomitant]
  8. AMIODARONE [Concomitant]
  9. METFORMIN HCL [Concomitant]
     Indication: DIABETES MELLITUS
  10. CRESTOR [Concomitant]

REACTIONS (3)
  - GAIT DISTURBANCE [None]
  - ABNORMAL FAECES [None]
  - MUSCULAR WEAKNESS [None]
